FAERS Safety Report 6013620-8 (Version None)
Quarter: 2008Q4

REPORT INFORMATION
  Report Type: 
  Country: None (occurrence: None)
  Receive Date: 20081216
  Receipt Date: 20071022
  Transmission Date: 20090506
  Serious: Yes (Death)
  Sender: FDA-Public Use
  Company Number: US-WYE-H00782407

PATIENT
  Sex: Male

DRUGS (5)
  1. EFFEXOR XR [Suspect]
     Indication: BIPOLAR I DISORDER
     Dosage: 150 MG 1X PER 1 DAY, ORAL ; 75 MG 1X PER 1 DAY, ORAL
     Route: 048
     Dates: start: 20070507, end: 20070519
  2. EFFEXOR XR [Suspect]
     Indication: BIPOLAR I DISORDER
     Dosage: 150 MG 1X PER 1 DAY, ORAL ; 75 MG 1X PER 1 DAY, ORAL
     Route: 048
     Dates: start: 20070520, end: 20070520
  3. ZOLOFT [Concomitant]
  4. LAMICTAL [Concomitant]
  5. KLONOPIN [Concomitant]

REACTIONS (1)
  - COMPLETED SUICIDE [None]
